FAERS Safety Report 7022027-6 (Version None)
Quarter: 2010Q3

REPORT INFORMATION
  Report Type: 
  Country: None (occurrence: None)
  Receive Date: 20100928
  Receipt Date: 20100917
  Transmission Date: 20110219
  Serious: Yes (Disabling, Other)
  Sender: FDA-Public Use
  Company Number: 2010MA002786

PATIENT
  Age: 87 Year
  Sex: Female

DRUGS (4)
  1. FLUOXETINE [Suspect]
     Indication: DEPRESSION
     Dosage: 20 MG;QD;PO
     Route: 048
     Dates: end: 20100905
  2. PERINDOPRIL [Concomitant]
  3. BENDROFLUMETHIAZIDE [Concomitant]
  4. DIAZEPAM [Concomitant]

REACTIONS (2)
  - MYOPATHY [None]
  - URTICARIA [None]
